FAERS Safety Report 20474187 (Version 1)
Quarter: 2022Q1

REPORT INFORMATION
  Report Type: Spontaneous
  Country: CA (occurrence: CA)
  Receive Date: 20220215
  Receipt Date: 20220215
  Transmission Date: 20220423
  Serious: Yes (Other)
  Sender: FDA-Public Use
  Company Number: CA-PFIZER INC-202200255177

PATIENT
  Age: 78 Year
  Sex: Male

DRUGS (3)
  1. XELJANZ XR [Suspect]
     Active Substance: TOFACITINIB CITRATE
     Indication: Rheumatoid arthritis
     Dosage: 11 MG, 1X/DAY
     Route: 048
     Dates: start: 20210917, end: 202202
  2. CORTISONE [Concomitant]
     Active Substance: CORTISONE
     Dosage: 1 DF, DECREASING DOSE;
     Dates: start: 20210903
  3. SULFASALAZINE [Concomitant]
     Active Substance: SULFASALAZINE
     Dosage: 1 DF
     Dates: start: 202106

REACTIONS (1)
  - Neoplasm malignant [Not Recovered/Not Resolved]
